FAERS Safety Report 5140847-X (Version None)
Quarter: 2006Q4

REPORT INFORMATION
  Report Type: 
  Country: None (occurrence: None)
  Receive Date: 20061026
  Receipt Date: 20061013
  Transmission Date: 20070319
  Serious: Yes (Other)
  Sender: FDA-Public Use
  Company Number: 2006127234

PATIENT
  Age: 25 Year
  Sex: Male

DRUGS (1)
  1. LYRICA [Suspect]
     Dosage: 150 MG (75 MG, 2 IN 1 D)
     Dates: start: 20060922

REACTIONS (1)
  - RHABDOMYOLYSIS [None]
